FAERS Safety Report 12707388 (Version 2)
Quarter: 2016Q4

REPORT INFORMATION
  Report Type: Spontaneous
  Country: JP (occurrence: JP)
  Receive Date: 20160901
  Receipt Date: 20161002
  Transmission Date: 20170207
  Serious: Yes (Hospitalization)
  Sender: FDA-Public Use
  Company Number: JP-ROCHE-1801870

PATIENT
  Age: 42 Year
  Sex: Male
  Weight: 70 kg

DRUGS (5)
  1. FENTOS (JAPAN) [Concomitant]
     Active Substance: FENTANYL
     Route: 062
     Dates: start: 20151022
  2. CARBOPLATIN. [Concomitant]
     Active Substance: CARBOPLATIN
     Indication: LUNG ADENOCARCINOMA
     Dosage: 4 CYCLE COMPLETED
     Route: 041
     Dates: start: 20150626, end: 20151004
  3. TAXOL [Concomitant]
     Active Substance: PACLITAXEL
     Indication: LUNG ADENOCARCINOMA
     Dosage: 4 CYCLE COMPLETED
     Route: 041
     Dates: start: 20150626, end: 20151004
  4. AVASTIN [Suspect]
     Active Substance: BEVACIZUMAB
     Indication: LUNG ADENOCARCINOMA
     Dosage: 4 CYCLES AS FIRST LINE THERAPY
     Route: 041
     Dates: start: 20150626, end: 20151004
  5. AVASTIN [Suspect]
     Active Substance: BEVACIZUMAB
     Dosage: 4 CYCLES AS MAINTENANCE THERAPY
     Route: 041
     Dates: start: 20151008, end: 20151225

REACTIONS (2)
  - Small intestinal perforation [Recovered/Resolved]
  - Tumour necrosis [Recovered/Resolved]

NARRATIVE: CASE EVENT DATE: 20151225
